FAERS Safety Report 17070416 (Version 1)
Quarter: 2019Q4

REPORT INFORMATION
  Report Type: Spontaneous
  Country: US (occurrence: US)
  Receive Date: 20191025
  Receipt Date: 20191025
  Transmission Date: 20200122
  Serious: No
  Sender: FDA-Public Use
  Company Number: None

PATIENT
  Age: 55 Year
  Sex: Female

DRUGS (1)
  1. REBIF [Suspect]
     Active Substance: INTERFERON BETA-1A
     Route: 058
     Dates: start: 2018

REACTIONS (3)
  - Sciatica [None]
  - Hyperhidrosis [None]
  - Musculoskeletal stiffness [None]

NARRATIVE: CASE EVENT DATE: 20191018
